FAERS Safety Report 9165255 (Version 2)
Quarter: 2013Q1

REPORT INFORMATION
  Report Type: Spontaneous
  Country: SE (occurrence: None)
  Receive Date: 20130227
  Receipt Date: 20130311
  Transmission Date: 20140127
  Serious: Yes (Hospitalization)
  Sender: FDA-Public Use
  Company Number: SYM-2013-00896

PATIENT
  Age: 69 Year
  Sex: Male

DRUGS (17)
  1. FLUOROURACIL [Suspect]
     Indication: COLORECTAL CANCER METASTATIC
     Route: 041
     Dates: start: 20130123, end: 20130123
  2. IRINOTECAN [Suspect]
     Indication: COLORECTAL CANCER METASTATIC
     Route: 042
     Dates: start: 20130123, end: 20130123
  3. LEUCOVORIN [Suspect]
     Indication: COLORECTAL CANCER
     Route: 042
     Dates: start: 20130123, end: 20130123
  4. AFLIBERCEPT [Suspect]
     Indication: COLORECTAL CANCER
     Route: 042
     Dates: start: 20130123, end: 20130123
  5. FORMOTEROL W/BUDESONIDE (FORMOTEROL W/BUDESONIDE) (BUDESONIDE, FORMOTEROL) [Concomitant]
  6. METOCLOPRAMIDE (METOCLOPRAMIDE) [Concomitant]
  7. SERONTONIN ANTAGONISTS (SEROTONIN ANTAGONISTS) [Concomitant]
  8. CORTICOSTEROIDS (CORTICOSTEROIDS) [Concomitant]
  9. ANTICHOLINERGICS (ANTICHOLINERGICS) [Concomitant]
  10. PARACETAMOL (PARACETAMOL) [Concomitant]
  11. ANTIFUNGALS FOR SYSTEMIC USE (ANTIFUNGALS FOR SYSTEMIC USE) [Concomitant]
  12. DIURETICS (DIURETICS) [Concomitant]
  13. BETA BLOCKING AGENTS (BETA BLOCKING AGENTS) [Concomitant]
  14. CORTICOSTEROID NOS (CORTICOSTEROID NOS) [Concomitant]
  15. ALLOPURINOL [Concomitant]
  16. OPIOIDS (OPIOIDS) [Concomitant]
  17. SPIRIVA (TIOTROPIUM BROMIDE) (TIOTROPIUM BROMIDE) [Concomitant]

REACTIONS (3)
  - Stomatitis [None]
  - Weight decreased [None]
  - Hypophagia [None]
